FAERS Safety Report 11074511 (Version 4)
Quarter: 2015Q3

REPORT INFORMATION
  Report Type: Report from Study
  Country: CA (occurrence: CA)
  Receive Date: 20150429
  Receipt Date: 20150715
  Transmission Date: 20151125
  Serious: Yes (Other)
  Sender: FDA-Public Use
  Company Number: PHHY2014CA023744

PATIENT
  Age: 65 Year
  Sex: Male

DRUGS (1)
  1. ZOMETA [Suspect]
     Active Substance: ZOLEDRONIC ACID
     Indication: LUNG NEOPLASM MALIGNANT
     Dosage: 4 MG, EVERY 4 WEEKS
     Route: 042
     Dates: start: 20140221

REACTIONS (15)
  - Asthenia [Unknown]
  - Abdominal pain [Unknown]
  - Dysgeusia [Unknown]
  - Heart rate irregular [Unknown]
  - Off label use [Unknown]
  - Flank pain [Unknown]
  - Respiratory rate increased [Unknown]
  - Blood pressure systolic increased [Unknown]
  - Fatigue [Unknown]
  - Decreased appetite [Recovering/Resolving]
  - Heart rate increased [Unknown]
  - Back pain [Unknown]
  - Dyspnoea exertional [Not Recovered/Not Resolved]
  - Hepatic neoplasm [Unknown]
  - Insomnia [Unknown]

NARRATIVE: CASE EVENT DATE: 20140221
